FAERS Safety Report 14607184 (Version 2)
Quarter: 2018Q2

REPORT INFORMATION
  Report Type: Spontaneous
  Country: US (occurrence: US)
  Receive Date: 20180307
  Receipt Date: 20180410
  Transmission Date: 20180711
  Serious: No
  Sender: FDA-Public Use
  Company Number: US-LEXICON PHARMACEUTICALS, INC-18-1606-00225

PATIENT
  Sex: Female

DRUGS (9)
  1. ALDACTONE [Concomitant]
     Active Substance: SPIRONOLACTONE
     Route: 048
  2. KCL [Concomitant]
     Active Substance: POTASSIUM CHLORIDE
  3. AFINITOR [Concomitant]
     Active Substance: EVEROLIMUS
  4. TELOTRISTAT ETHYL [Suspect]
     Active Substance: TELOTRISTAT ETHYL
     Indication: CARCINOID TUMOUR
     Route: 048
     Dates: start: 20180124, end: 2018
  5. TELOTRISTAT ETHYL [Suspect]
     Active Substance: TELOTRISTAT ETHYL
     Dosage: ON 12FEB2018 THE PATIENT REPORTED SHE TAKES 2 OR 3 XERMELO A DAY DEPENDING ON HOW SHE FEELS. THIS DO
     Route: 048
     Dates: start: 2018, end: 2018
  6. TELOTRISTAT ETHYL [Suspect]
     Active Substance: TELOTRISTAT ETHYL
     Dosage: ON 12FEB2018 THE PATIENT REPORTED SHE TAKES 2 OR 3 XERMELO A DAY DEPENDING ON HOW SHE FEELS. DOSING
     Route: 048
     Dates: start: 20180222
  7. LOMOTIL [Concomitant]
     Active Substance: ATROPINE SULFATE\DIPHENOXYLATE HYDROCHLORIDE
  8. SANDOSTATIN [Concomitant]
     Active Substance: OCTREOTIDE ACETATE
     Dates: start: 201611
  9. INSULIN [Concomitant]
     Active Substance: INSULIN NOS

REACTIONS (1)
  - Off label use [Not Recovered/Not Resolved]

NARRATIVE: CASE EVENT DATE: 2018
